FAERS Safety Report 6136592-4 (Version None)
Quarter: 2009Q1

REPORT INFORMATION
  Report Type: 
  Country: None (occurrence: None)
  Receive Date: 20090330
  Receipt Date: 20090318
  Transmission Date: 20090719
  Serious: Yes (Life-Threatening, Hospitalization)
  Sender: FDA-Public Use
  Company Number: JP-PFIZER INC-2009178330

PATIENT

DRUGS (11)
  1. VFEND [Suspect]
     Indication: FEBRILE NEUTROPENIA
     Dosage: 200 MG, 2X/DAY
     Route: 042
     Dates: start: 20090212, end: 20090213
  2. ALLOPURINOL [Concomitant]
     Route: 048
  3. THYRADIN S [Concomitant]
     Dosage: UNK
     Route: 048
  4. ONE-ALPHA [Concomitant]
     Dosage: UNK
     Route: 048
  5. RIMATIL [Concomitant]
     Route: 048
     Dates: end: 20090213
  6. PAZUCROSS [Concomitant]
     Route: 042
     Dates: start: 20090212, end: 20090215
  7. GRAN [Concomitant]
     Route: 058
     Dates: start: 20090204, end: 20090220
  8. MICAFUNGIN SODIUM [Concomitant]
     Route: 042
     Dates: start: 20090207, end: 20090211
  9. TIENAM [Concomitant]
     Dates: start: 20090210, end: 20090211
  10. PLATELETS, HUMAN BLOOD [Concomitant]
     Route: 042
  11. HUMAN RED BLOOD CELLS [Concomitant]
     Route: 042

REACTIONS (1)
  - VENTRICULAR TACHYCARDIA [None]
